FAERS Safety Report 20172930 (Version 3)
Quarter: 2023Q4

REPORT INFORMATION
  Report Type: Spontaneous
  Country: DE (occurrence: DE)
  Receive Date: 20211211
  Receipt Date: 20231215
  Transmission Date: 20240110
  Serious: Yes (Other)
  Sender: FDA-Public Use
  Company Number: DE-NOVARTISPH-NVSC2021DE273631

PATIENT
  Age: 70 Year
  Sex: Male
  Weight: 125 kg

DRUGS (4)
  1. COSENTYX [Suspect]
     Active Substance: SECUKINUMAB
     Indication: Psoriasis
     Dosage: 300 MG
     Route: 065
     Dates: start: 20150717, end: 20170206
  2. TALTZ [Suspect]
     Active Substance: IXEKIZUMAB
     Indication: Psoriasis
     Dosage: 80 MG
     Route: 065
     Dates: start: 20180108, end: 20180828
  3. STELARA [Suspect]
     Active Substance: USTEKINUMAB
     Indication: Psoriasis
     Dosage: 90 MG
     Route: 065
     Dates: start: 20170206, end: 20170706
  4. HUMIRA [Suspect]
     Active Substance: ADALIMUMAB
     Indication: Psoriasis
     Dosage: 40 MG
     Route: 058
     Dates: start: 20170803, end: 20180108

REACTIONS (11)
  - Prostate cancer [Not Recovered/Not Resolved]
  - Prostatic specific antigen increased [Unknown]
  - Urinary retention postoperative [Unknown]
  - Chronic obstructive pulmonary disease [Recovered/Resolved with Sequelae]
  - Aortic elongation [Recovered/Resolved with Sequelae]
  - Aortic arteriosclerosis [Recovered/Resolved with Sequelae]
  - Bundle branch block right [Recovered/Resolved with Sequelae]
  - Seminal vesicular disorder [Unknown]
  - Stasis dermatitis [Recovered/Resolved with Sequelae]
  - Cardiomegaly [Recovered/Resolved with Sequelae]
  - Drug ineffective [Unknown]

NARRATIVE: CASE EVENT DATE: 20200331
